FAERS Safety Report 8262696-6 (Version None)
Quarter: 2012Q2

REPORT INFORMATION
  Report Type: 
  Country: None (occurrence: None)
  Receive Date: 20120405
  Receipt Date: 20120403
  Transmission Date: 20120825
  Serious: Yes (Death, Other)
  Sender: FDA-Public Use
  Company Number: PHHY2012GB022162

PATIENT
  Age: 44 Year
  Sex: Female
  Weight: 62.5 kg

DRUGS (7)
  1. DICLOFENAC SODIUM [Concomitant]
     Dosage: 50 MG, TID
  2. COPEGUS [Suspect]
     Indication: HEPATITIS C
     Dosage: 4000 MG, BID
     Route: 048
     Dates: start: 20110209
  3. AMITRIPTYLINE HCL [Suspect]
     Indication: PAIN
     Dosage: 25 MG, UNK
     Route: 048
  4. PEGASYS [Suspect]
     Indication: HEPATITIS C
     Dosage: 180 UG, QW
     Route: 058
     Dates: start: 20110209
  5. METHADONE HCL [Suspect]
     Indication: DRUG DEPENDENCE
     Route: 048
  6. ALBUTEROL [Concomitant]
  7. DIAZEPAM [Suspect]

REACTIONS (2)
  - TOXICITY TO VARIOUS AGENTS [None]
  - HEPATIC CIRRHOSIS [None]
